FAERS Safety Report 6544027-2 (Version None)
Quarter: 2010Q1

REPORT INFORMATION
  Report Type: 
  Country: None (occurrence: None)
  Receive Date: 20100120
  Receipt Date: 20100108
  Transmission Date: 20100710
  Serious: Yes (Death, Hospitalization)
  Sender: FDA-Public Use
  Company Number: US-PFIZER INC-2009303475

PATIENT
  Sex: Male
  Weight: 99.773 kg

DRUGS (9)
  1. PREDNISONE TAB [Suspect]
     Indication: PROSTATE CANCER
     Dosage: 5 MG, 2X/DAY
     Route: 048
     Dates: start: 20091022, end: 20091125
  2. BLINDED *NO SUBJECT DRUG [Suspect]
     Indication: PROSTATE CANCER
     Dosage: 37.5 MG, 1X/DAY
     Route: 048
     Dates: start: 20091022, end: 20091125
  3. BLINDED *PLACEBO [Suspect]
     Indication: PROSTATE CANCER
     Dosage: 37.5 MG, 1X/DAY
     Route: 048
     Dates: start: 20091022, end: 20091125
  4. BLINDED SUNITINIB MALATE [Suspect]
     Indication: PROSTATE CANCER
     Dosage: 37.5 MG, 1X/DAY
     Route: 048
     Dates: start: 20091022, end: 20091125
  5. COREG [Concomitant]
     Indication: HYPERTENSION
     Dosage: 20 MG, 1X/DAY
     Route: 048
     Dates: start: 20081001
  6. MORPHINE SULFATE [Concomitant]
     Indication: CANCER PAIN
     Dosage: 30 MG, EVERY 3-4 HOURS AS NEEDED
     Route: 048
     Dates: start: 20090812
  7. MORPHINE SULFATE [Concomitant]
     Indication: BACK PAIN
  8. DEXAMETHASONE [Concomitant]
     Indication: BONE PAIN
     Dosage: UNK
     Dates: start: 20091016
  9. ZOLEDRONIC ACID [Concomitant]
     Indication: METASTASES TO BONE
     Dosage: UNK
     Route: 042
     Dates: start: 20091111, end: 20091111

REACTIONS (3)
  - GINGIVAL BLEEDING [None]
  - HYPOTENSION [None]
  - SEPSIS [None]
